FAERS Safety Report 6125254-5 (Version None)
Quarter: 2009Q1

REPORT INFORMATION
  Report Type: 
  Country: None (occurrence: None)
  Receive Date: 20090320
  Receipt Date: 20090311
  Transmission Date: 20090719
  Serious: Yes (Other)
  Sender: FDA-Public Use
  Company Number: PHBS2007BR09837

PATIENT
  Age: 26 Year
  Sex: Male
  Weight: 83 kg

DRUGS (10)
  1. LEPONEX [Suspect]
     Indication: HALLUCINATION
     Dosage: 100 MG, D
     Route: 048
     Dates: start: 20060101
  2. LEPONEX [Interacting]
     Indication: DELIRIUM
     Dosage: 300MG
  3. LEPONEX [Interacting]
     Dosage: 400 MG/DAY
     Route: 048
     Dates: start: 20050101
  4. LEPONEX [Interacting]
     Dosage: 225 MG/DAY + 250MG NIGHT
     Route: 048
  5. LEPONEX [Interacting]
     Dosage: 200 MG DAILY
     Dates: start: 20080701
  6. LEPONEX [Interacting]
     Dosage: ? TABLET OF 25MG
  7. LEPONEX [Interacting]
     Dosage: NO TREATMENT
  8. LEPONEX [Interacting]
     Dosage: 50MG DAILY
  9. LEPONEX [Interacting]
     Dosage: DOSE INCREASED EVERY 2 0R 3 DAYS
  10. RIVOTRIL [Interacting]
     Indication: DELIRIUM
     Dosage: 2 MG, QD
     Route: 048

REACTIONS (17)
  - ANXIETY [None]
  - CONFUSIONAL STATE [None]
  - DELIRIUM [None]
  - DRUG INTERACTION [None]
  - EXTRAPYRAMIDAL DISORDER [None]
  - GENERAL PHYSICAL HEALTH DETERIORATION [None]
  - HALLUCINATION, AUDITORY [None]
  - HICCUPS [None]
  - HYPERTHERMIA [None]
  - MANIA [None]
  - NASOPHARYNGITIS [None]
  - OBSESSIVE-COMPULSIVE DISORDER [None]
  - PSYCHOTIC DISORDER [None]
  - SALIVARY HYPERSECRETION [None]
  - SOCIAL AVOIDANT BEHAVIOUR [None]
  - SOMNOLENCE [None]
  - WITHDRAWAL SYNDROME [None]
